FAERS Safety Report 15793234 (Version 1)
Quarter: 2019Q1

REPORT INFORMATION
  Report Type: Spontaneous
  Country: US (occurrence: US)
  Receive Date: 20190107
  Receipt Date: 20190107
  Transmission Date: 20190417
  Serious: No
  Sender: FDA-Public Use
  Company Number: US-TEVA-2018-US-987740

PATIENT
  Sex: Female

DRUGS (1)
  1. VALSARTAN ACTAVIS [Suspect]
     Active Substance: VALSARTAN
     Indication: HYPERTENSION

REACTIONS (4)
  - Eye disorder [Unknown]
  - Recalled product administered [Unknown]
  - Dyspepsia [Unknown]
  - Muscle spasms [Unknown]
